FAERS Safety Report 7347155-7 (Version None)
Quarter: 2011Q1

REPORT INFORMATION
  Report Type: 
  Country: None (occurrence: None)
  Receive Date: 20110311
  Receipt Date: 20110307
  Transmission Date: 20110831
  Serious: Yes (Disabling, Other)
  Sender: FDA-Public Use
  Company Number: GB-PFIZER INC-2011026727

PATIENT
  Age: 39 Year
  Sex: Male
  Weight: 107 kg

DRUGS (7)
  1. LYRICA [Suspect]
     Indication: NEURALGIA
     Dosage: 600 MG, 3X/DAY
     Route: 048
     Dates: start: 20100722, end: 20110126
  2. VENLAFAXINE [Concomitant]
     Dosage: 225 MG, UNK
     Route: 048
     Dates: start: 20101101
  3. DIAZEPAM [Concomitant]
     Indication: PAIN
     Dosage: 2 MG, 3X/DAY
     Route: 048
  4. VENLAFAXINE [Concomitant]
     Indication: DEPRESSION
     Dosage: 150 MG, UNK
     Route: 048
     Dates: end: 20101101
  5. DIHYDROCODEINE [Concomitant]
     Indication: PAIN
     Dosage: 60 MG, 2X/DAY
     Route: 048
     Dates: start: 20090701, end: 20110209
  6. LYRICA [Suspect]
     Dosage: UNK
     Dates: start: 20110126
  7. TRAMADOL [Concomitant]
     Indication: PAIN
     Dosage: 100 MG, 2X/DAY
     Route: 048
     Dates: end: 20110209

REACTIONS (4)
  - INCORRECT DOSE ADMINISTERED [None]
  - SEDATION [None]
  - URINARY RETENTION [None]
  - WEIGHT INCREASED [None]
